FAERS Safety Report 14670054 (Version 2)
Quarter: 2018Q2

REPORT INFORMATION
  Report Type: Spontaneous
  Country: US (occurrence: US)
  Receive Date: 20180322
  Receipt Date: 20180503
  Transmission Date: 20180711
  Serious: No
  Sender: FDA-Public Use
  Company Number: US-PFIZER INC-2018120919

PATIENT
  Age: 62 Year
  Sex: Female

DRUGS (1)
  1. XELJANZ XR [Suspect]
     Active Substance: TOFACITINIB CITRATE
     Indication: RHEUMATOID ARTHRITIS
     Dosage: 11 MG, DAILY
     Route: 048
     Dates: start: 20180301

REACTIONS (9)
  - Dizziness [Unknown]
  - Rhinorrhoea [Unknown]
  - Eye inflammation [Unknown]
  - Alopecia [Unknown]
  - Oropharyngeal pain [Unknown]
  - Nausea [Unknown]
  - Paranasal sinus discomfort [Unknown]
  - Headache [Unknown]
  - Nasal congestion [Unknown]
